FAERS Safety Report 24666045 (Version 1)
Quarter: 2024Q4

REPORT INFORMATION
  Report Type: Spontaneous
  Country: FR (occurrence: FR)
  Receive Date: 20241126
  Receipt Date: 20241126
  Transmission Date: 20250115
  Serious: Yes (Hospitalization)
  Sender: FRESENIUS KABI
  Company Number: None

PATIENT
  Age: 79 Year
  Sex: Female
  Weight: 60 kg

DRUGS (12)
  1. LINEZOLID [Suspect]
     Active Substance: LINEZOLID
     Indication: Device related infection
     Route: 042
     Dates: start: 20241016, end: 20241021
  2. CLINDAMYCIN [Suspect]
     Active Substance: CLINDAMYCIN
     Indication: Device related infection
     Dates: start: 20241008, end: 20241020
  3. DOLIPRANE [Suspect]
     Active Substance: ACETAMINOPHEN
     Indication: Pain
     Dosage: 2 X 500MG 3/J
     Route: 048
     Dates: start: 20241009, end: 20241019
  4. ESOMEPRAZOLE [Concomitant]
     Active Substance: ESOMEPRAZOLE
     Indication: Product used for unknown indication
  5. MOVICOL [SODIUM BICARBONATE, POTASSIUM CHLORIDE, SODIUM CHLORIDE, E 33 [Concomitant]
     Indication: Product used for unknown indication
  6. PHOSPHONEUROS [CONCENTRATED PHOSPHORIC ACID, MAGNESIUM GLYCEROPHOSPHAT [Concomitant]
     Indication: Product used for unknown indication
  7. LOVENOX [ENOXAPARIN SODIUM ((MAMMAL/PIG/INTESTINAL MUCOSA))] [Concomitant]
     Indication: Product used for unknown indication
  8. FLUDEX [INDAPAMIDE HEMIHYDRATE] [Concomitant]
     Indication: Product used for unknown indication
  9. NEBIVOLOL [Concomitant]
     Active Substance: NEBIVOLOL
     Indication: Product used for unknown indication
  10. AMLODIPINE [Concomitant]
     Active Substance: AMLODIPINE BESYLATE
     Indication: Product used for unknown indication
  11. VALSARTAN [Concomitant]
     Active Substance: VALSARTAN
     Indication: Product used for unknown indication
  12. CRESTOR [ROSUVASTATIN CALCIUM] [Concomitant]
     Indication: Product used for unknown indication

REACTIONS (1)
  - Cholestasis [Recovering/Resolving]

NARRATIVE: CASE EVENT DATE: 20241020
